FAERS Safety Report 17572876 (Version 1)
Quarter: 2020Q1

REPORT INFORMATION
  Report Type: Spontaneous
  Country: FR (occurrence: FR)
  Receive Date: 20200323
  Receipt Date: 20200323
  Transmission Date: 20200409
  Serious: Yes (Other)
  Sender: FDA-Public Use
  Company Number: FR-BRISTOL-MYERS SQUIBB COMPANY-BMS-2020-024482

PATIENT
  Age: 83 Year
  Sex: Female
  Weight: 70 kg

DRUGS (1)
  1. ELIQUIS [Suspect]
     Active Substance: APIXABAN
     Indication: CEREBROVASCULAR ACCIDENT PROPHYLAXIS
     Dosage: 5 UNIT NOT SPECIFIED, BID
     Route: 065

REACTIONS (4)
  - Pericarditis [Unknown]
  - Asthma [Unknown]
  - Effusion [Unknown]
  - Polycythaemia [Unknown]

NARRATIVE: CASE EVENT DATE: 20200317
